FAERS Safety Report 4703601-6 (Version None)
Quarter: 2005Q2

REPORT INFORMATION
  Report Type: 
  Country: None (occurrence: None)
  Receive Date: 20050630
  Receipt Date: 20050622
  Transmission Date: 20051028
  Serious: Yes (Death, Hospitalization)
  Sender: FDA-Public Use
  Company Number: US-ABBOTT-05P-163-0303814-00

PATIENT
  Sex: Female

DRUGS (1)
  1. TRICOR 134 MG [Suspect]
     Indication: LIPIDS INCREASED
     Route: 048

REACTIONS (4)
  - CARDIAC FAILURE CONGESTIVE [None]
  - CEREBROVASCULAR ACCIDENT [None]
  - CHRONIC OBSTRUCTIVE PULMONARY DISEASE [None]
  - DEMENTIA [None]
